FAERS Safety Report 21084255 (Version 1)
Quarter: 2022Q3

REPORT INFORMATION
  Report Type: Spontaneous
  Country: US (occurrence: US)
  Receive Date: 20220714
  Receipt Date: 20220714
  Transmission Date: 20221026
  Serious: No
  Sender: FDA-Public Use
  Company Number: US-JAZZ-2022-US-015782

PATIENT
  Sex: Male

DRUGS (9)
  1. EPIDIOLEX [Suspect]
     Active Substance: CANNABIDIOL
     Indication: Lennox-Gastaut syndrome
     Dosage: 6 MILLILITER, BID
     Route: 048
  2. EPIDIOLEX [Suspect]
     Active Substance: CANNABIDIOL
     Indication: Status epilepticus
  3. HALCION [Concomitant]
     Active Substance: TRIAZOLAM
     Dosage: UNK
  4. VIMPAT [Concomitant]
     Active Substance: LACOSAMIDE
     Dosage: UNK
  5. VALTOCO [Concomitant]
     Active Substance: DIAZEPAM
     Dosage: UNK
  6. VITAMIN C + COLLAGEN [Concomitant]
     Dosage: UNK
  7. VITAMIN D3 [Concomitant]
     Active Substance: CHOLECALCIFEROL
     Dosage: UNK
  8. ZINC SULFATE [Concomitant]
     Active Substance: ZINC SULFATE
     Dosage: UNK
  9. LAMOTRIGINE [Concomitant]
     Active Substance: LAMOTRIGINE
     Dosage: UNK

REACTIONS (2)
  - Cough [Unknown]
  - Diarrhoea [Unknown]
